FAERS Safety Report 8967647 (Version 1)
Quarter: 2012Q4

REPORT INFORMATION
  Report Type: Spontaneous
  Country: ES (occurrence: None)
  Receive Date: 20121204
  Receipt Date: 20121204
  Transmission Date: 20130627
  Serious: Yes (Life-Threatening, Hospitalization)
  Sender: FDA-Public Use
  Company Number: DSM-2012-01316

PATIENT
  Age: 8 Year
  Sex: Female

DRUGS (6)
  1. OLMESARTAN MEDOXOMIL [Suspect]
     Indication: HYPERTENSION
     Route: 048
     Dates: start: 20120418
  2. ALDACTONE [Suspect]
     Indication: CONGESTIVE HEART FAILURE
     Route: 048
     Dates: start: 20120402
  3. AMLODIPINE BESILATE (AMLODIPINE BESILATE) (AMLODIPINE BESILATE) [Concomitant]
  4. LERCANIDIPINE HYDROCHLORIDE (LERCANIDIPINE HYROCHLORIDE) [Concomitant]
  5. EUTHYROX (LEVOTHYROXOINE SODIUM) (LEVOTHYROXINE SODIUM) [Concomitant]
  6. NOVOMIX (INSULIN ASPART) (INSULIN ASPART) [Concomitant]

REACTIONS (8)
  - Hyperkalaemia [None]
  - Bradycardia [None]
  - Atrial fibrillation [None]
  - Drug interaction [None]
  - Dilatation atrial [None]
  - Aortic arteriosclerosis [None]
  - Aortic valve incompetence [None]
  - Tricuspid valve incompetence [None]
